FAERS Safety Report 8224254-9 (Version None)
Quarter: 2012Q1

REPORT INFORMATION
  Report Type: 
  Country: None (occurrence: None)
  Receive Date: 20120321
  Receipt Date: 20120308
  Transmission Date: 20120608
  Serious: Yes (Other)
  Sender: FDA-Public Use
  Company Number: PHEH2012US001717

PATIENT
  Sex: Male
  Weight: 95.238 kg

DRUGS (2)
  1. TASIGNA [Suspect]
     Indication: CHRONIC MYELOID LEUKAEMIA
     Dosage: 300 MG, TWICE A DAILY
     Route: 048
     Dates: start: 20101130
  2. SYNTHROID [Concomitant]
     Dosage: 200 UG, DAILY

REACTIONS (5)
  - RECTAL FISSURE [None]
  - PANCREATITIS [None]
  - HAEMATOCHEZIA [None]
  - RECTAL HAEMORRHAGE [None]
  - CONSTIPATION [None]
